FAERS Safety Report 20535947 (Version 2)
Quarter: 2023Q1

REPORT INFORMATION
  Report Type: Spontaneous
  Country: US (occurrence: None)
  Receive Date: 20220302
  Receipt Date: 20230223
  Transmission Date: 20230417
  Serious: No
  Sender: FDA-Public Use
  Company Number: US-ROCHE-2932077

PATIENT
  Sex: Female
  Weight: 68.100 kg

DRUGS (2)
  1. NUTROPIN [Suspect]
     Active Substance: SOMATROPIN
     Indication: Hypopituitarism
     Dosage: ONGOING-YES, NUSPIN 20 PEN- 20 MG/2 ML
     Route: 058
     Dates: start: 20210920
  2. NUTROPIN [Suspect]
     Active Substance: SOMATROPIN

REACTIONS (7)
  - Arthralgia [Unknown]
  - Myalgia [Unknown]
  - Dyspnoea [Unknown]
  - Headache [Unknown]
  - Weight increased [Unknown]
  - Peripheral swelling [Unknown]
  - Drug ineffective [Unknown]
